FAERS Safety Report 4553012-1 (Version None)
Quarter: 2005Q1

REPORT INFORMATION
  Report Type: 
  Country: None (occurrence: None)
  Receive Date: 20050113
  Receipt Date: 20050103
  Transmission Date: 20050727
  Serious: Yes (Hospitalization)
  Sender: FDA-Public Use
  Company Number: 2005CG00026

PATIENT
  Age: 79 Year
  Sex: Male
  Weight: 73 kg

DRUGS (8)
  1. NEXIUM [Suspect]
     Dosage: 20 MG DAILY PO
     Route: 048
     Dates: start: 20040101, end: 20041011
  2. METOPROLOL TARTRATE [Concomitant]
  3. PREVISCAN [Concomitant]
  4. CORDARONE [Concomitant]
  5. LASILIX [Concomitant]
  6. KALEROID [Concomitant]
  7. COVERSYL [Concomitant]
  8. ... [Concomitant]

REACTIONS (6)
  - AGRANULOCYTOSIS [None]
  - CARDIAC DISORDER [None]
  - LUNG DISORDER [None]
  - LUNG INFECTION [None]
  - PERINEAL ABSCESS [None]
  - PLEURAL DISORDER [None]
